FAERS Safety Report 20623067 (Version 1)
Quarter: 2022Q1

REPORT INFORMATION
  Report Type: Report from Study
  Country: DK (occurrence: DK)
  Receive Date: 20220322
  Receipt Date: 20220322
  Transmission Date: 20220423
  Serious: Yes (Hospitalization, Other)
  Sender: FDA-Public Use
  Company Number: DK-TAKEDA-DK201722158

PATIENT
  Age: 47 Year
  Sex: Female
  Weight: 60 kg

DRUGS (12)
  1. TEDUGLUTIDE [Suspect]
     Active Substance: TEDUGLUTIDE
     Indication: Short-bowel syndrome
     Route: 042
  2. TEDUGLUTIDE [Suspect]
     Active Substance: TEDUGLUTIDE
     Indication: Short-bowel syndrome
     Route: 042
  3. TEDUGLUTIDE [Suspect]
     Active Substance: TEDUGLUTIDE
     Indication: Short-bowel syndrome
     Route: 042
  4. TEDUGLUTIDE [Suspect]
     Active Substance: TEDUGLUTIDE
     Indication: Short-bowel syndrome
     Route: 042
  5. MEROPENEM [Concomitant]
     Active Substance: MEROPENEM
     Indication: Device related sepsis
     Dosage: 1000 MG, 3X/DAY:TID
     Route: 042
     Dates: start: 20170406, end: 20170409
  6. CIPROFLOXACIN [Concomitant]
     Active Substance: CIPROFLOXACIN
     Indication: Device related sepsis
     Dosage: 400 MILLIGRAM, BID
     Route: 042
     Dates: start: 20170402, end: 20170406
  7. CIPROFLOXACIN [Concomitant]
     Active Substance: CIPROFLOXACIN
     Indication: Device related infection
     Dosage: 400 MILLIGRAM, BID
     Route: 042
     Dates: start: 20220204, end: 20220208
  8. CEFUROXIM                          /00454602/ [Concomitant]
     Indication: Device related sepsis
     Dosage: 1500 MILLIGRAM, TID
     Route: 042
     Dates: start: 20170402, end: 20170406
  9. CEFUROXIM                          /00454602/ [Concomitant]
     Indication: Device related infection
     Dosage: 1500 MILLIGRAM, TID
     Route: 042
     Dates: start: 20220204, end: 20220213
  10. VANCOMYCIN [Concomitant]
     Active Substance: VANCOMYCIN
     Indication: Device related infection
     Dosage: 1000 MILLIGRAM, BID
     Route: 042
     Dates: start: 20170402, end: 20170406
  11. VANCOMYCIN [Concomitant]
     Active Substance: VANCOMYCIN
     Dosage: 1000 MILLIGRAM, BID
     Route: 042
     Dates: start: 20220204, end: 20220208
  12. ONDANSETRON [Concomitant]
     Active Substance: ONDANSETRON
     Indication: Nausea
     Dosage: 4 MILLIGRAM
     Route: 042
     Dates: start: 20210429, end: 20210430

REACTIONS (1)
  - Device related infection [Recovered/Resolved]

NARRATIVE: CASE EVENT DATE: 20170729
